FAERS Safety Report 9529906 (Version 13)
Quarter: 2014Q4

REPORT INFORMATION
  Report Type: Report from Study
  Country: US (occurrence: US)
  Receive Date: 20130917
  Receipt Date: 20141215
  Transmission Date: 20150529
  Serious: Yes (Death, Life-Threatening, Hospitalization)
  Sender: FDA-Public Use
  Company Number: US-ACTELION-A-US2013-88545

PATIENT
  Age: 56 Year
  Sex: Female

DRUGS (4)
  1. VENTAVIS [Suspect]
     Active Substance: ILOPROST
     Indication: PULMONARY ARTERIAL HYPERTENSION
     Dosage: 5 MCG, 6-9X/DAY
     Route: 055
     Dates: start: 20110705
  2. TRACLEER [Suspect]
     Active Substance: BOSENTAN\BOSENTAN MONOHYDRATE
     Indication: PULMONARY ARTERIAL HYPERTENSION
     Dosage: 125 MG, BID
     Route: 048
     Dates: start: 20121015, end: 20141129
  3. REVATIO [Suspect]
     Active Substance: SILDENAFIL CITRATE
     Indication: PULMONARY ARTERIAL HYPERTENSION
     Dosage: 20 MG, TID
     Route: 048
     Dates: start: 20140212
  4. COUMADIN [Concomitant]
     Active Substance: WARFARIN SODIUM

REACTIONS (17)
  - Drug dose omission [Unknown]
  - Cellulitis [Not Recovered/Not Resolved]
  - Pyrexia [Not Recovered/Not Resolved]
  - Thrombosis [Unknown]
  - Fluid retention [Recovering/Resolving]
  - Asthenia [Unknown]
  - Pulmonary embolism [Recovered/Resolved]
  - Urinary tract infection [Unknown]
  - Death [Fatal]
  - Cardiac failure [Recovering/Resolving]
  - Weight increased [Recovering/Resolving]
  - Lung disorder [Unknown]
  - Chest pain [Unknown]
  - Dyspnoea [Unknown]
  - Gastrointestinal disorder [Recovering/Resolving]
  - Chills [Not Recovered/Not Resolved]
  - Pulmonary hypertension [Unknown]

NARRATIVE: CASE EVENT DATE: 201401
